FAERS Safety Report 11586641 (Version 5)
Quarter: 2017Q3

REPORT INFORMATION
  Report Type: Spontaneous
  Country: US (occurrence: US)
  Receive Date: 20151001
  Receipt Date: 20170807
  Transmission Date: 20171127
  Serious: No
  Sender: FDA-Public Use
  Company Number: US-PFIZER INC-2015239466

PATIENT
  Age: 69 Year
  Sex: Female
  Weight: 81.65 kg

DRUGS (2)
  1. SUTENT [Suspect]
     Active Substance: SUNITINIB MALATE
     Indication: RENAL CANCER
     Dosage: 50 MG, CYCLIC (DAILY FOR 14 DAYS THEN OFF 7 DAYS)
     Route: 048
     Dates: start: 20150801
  2. SUTENT [Suspect]
     Active Substance: SUNITINIB MALATE
     Dosage: 50 MG, CYCLIC (Q DAY 2 WEEKS ON, 1 WEEK OFF)
     Route: 048

REACTIONS (10)
  - Rash [Unknown]
  - Nasal discomfort [Unknown]
  - Blood iron decreased [Unknown]
  - Pruritus [Unknown]
  - Thyroid function test abnormal [Unknown]
  - Aphthous ulcer [Recovered/Resolved]
  - Oxygen saturation decreased [Unknown]
  - Fatigue [Unknown]
  - Vitamin B12 decreased [Unknown]
  - Urticaria [Unknown]

NARRATIVE: CASE EVENT DATE: 2017
